FAERS Safety Report 10153739 (Version 5)
Quarter: 2015Q2

REPORT INFORMATION
  Report Type: Report from Study
  Country: BR (occurrence: BR)
  Receive Date: 20140506
  Receipt Date: 20150501
  Transmission Date: 20150821
  Serious: Yes (Other)
  Sender: FDA-Public Use
  Company Number: BR-ROCHE-1155127

PATIENT
  Age: 51 Year
  Sex: Female
  Weight: 73 kg

DRUGS (12)
  1. ACTEMRA [Suspect]
     Active Substance: TOCILIZUMAB
     Route: 042
     Dates: start: 20131125
  2. CARBAMAZEPINE. [Concomitant]
     Active Substance: CARBAMAZEPINE
  3. TIMOLOL MALEATE. [Concomitant]
     Active Substance: TIMOLOL MALEATE
     Dosage: EYE DROP
     Route: 065
  4. NPH INSULIN [Concomitant]
     Active Substance: INSULIN BEEF
     Indication: DIABETES MELLITUS
  5. LOSARTAN [Concomitant]
     Active Substance: LOSARTAN
  6. REGULAR INSULIN [Concomitant]
     Active Substance: INSULIN NOS
     Indication: DIABETES MELLITUS
     Dosage: ADMINISTERED IN THE MORNING AND AT NIGHT
     Route: 065
  7. PRESSAT [Concomitant]
     Active Substance: AMLODIPINE BESYLATE
  8. ACTEMRA [Suspect]
     Active Substance: TOCILIZUMAB
     Indication: RHEUMATOID ARTHRITIS
     Route: 042
     Dates: start: 20131024, end: 201401
  9. ACTEMRA [Suspect]
     Active Substance: TOCILIZUMAB
     Route: 042
     Dates: start: 20140122
  10. SIMVASTATIN. [Concomitant]
     Active Substance: SIMVASTATIN
  11. VIGADEXA [Concomitant]
     Active Substance: DEXAMETHASONE SODIUM PHOSPHATE\MOXIFLOXACIN HYDROCHLORIDE
     Dosage: EYE DROP
     Route: 065
  12. MABTHERA [Suspect]
     Active Substance: RITUXIMAB
     Indication: RHEUMATOID ARTHRITIS
     Route: 065
     Dates: start: 20121019

REACTIONS (11)
  - Cataract [Unknown]
  - Dysentery [Recovered/Resolved]
  - Arthralgia [Not Recovered/Not Resolved]
  - Visual impairment [Unknown]
  - Mass [Recovering/Resolving]
  - Vomiting [Recovered/Resolved]
  - Eye haemorrhage [Not Recovered/Not Resolved]
  - Visual impairment [Not Recovered/Not Resolved]
  - Retinal detachment [Unknown]
  - Hypertension [Not Recovered/Not Resolved]
  - Retinal disorder [Unknown]

NARRATIVE: CASE EVENT DATE: 201212
